FAERS Safety Report 14774311 (Version 1)
Quarter: 2018Q2

REPORT INFORMATION
  Report Type: Spontaneous
  Country: US (occurrence: US)
  Receive Date: 20180418
  Receipt Date: 20180418
  Transmission Date: 20180711
  Serious: No
  Sender: FDA-Public Use
  Company Number: US-PFIZER INC-2018153691

PATIENT
  Sex: Female

DRUGS (1)
  1. NALOXONE HCL [Suspect]
     Active Substance: NALOXONE HYDROCHLORIDE
     Indication: OVERDOSE
     Dosage: UNK (^0.4^ AT 2 DOSES)
     Route: 045
     Dates: start: 20170913

REACTIONS (18)
  - Vomiting [Unknown]
  - Fatigue [Unknown]
  - Hyperhidrosis [Unknown]
  - Hot flush [Unknown]
  - Sneezing [Unknown]
  - Asthenia [Unknown]
  - Tremor [Unknown]
  - Nasal disorder [Unknown]
  - Abnormal behaviour [Unknown]
  - Hallucination [Unknown]
  - Abdominal pain upper [Unknown]
  - Abdominal distension [Unknown]
  - Eye disorder [Unknown]
  - Irritability [Unknown]
  - Amnesia [Not Recovered/Not Resolved]
  - Constipation [Not Recovered/Not Resolved]
  - Dysuria [Unknown]
  - Incorrect route of drug administration [Unknown]

NARRATIVE: CASE EVENT DATE: 201709
